FAERS Safety Report 6052919-6 (Version None)
Quarter: 2009Q1

REPORT INFORMATION
  Report Type: 
  Country: None (occurrence: None)
  Receive Date: 20090127
  Receipt Date: 20080902
  Transmission Date: 20090719
  Serious: No
  Sender: FDA-Public Use
  Company Number: US-ABBOTT-08P-163-0473060-00

PATIENT
  Sex: Male
  Weight: 68.1 kg

DRUGS (6)
  1. LUPRON DEPOT [Suspect]
     Indication: PROSTATE CANCER
     Route: 030
     Dates: start: 20030101
  2. LUPRON DEPOT [Suspect]
  3. GENERIC ZANTAC [Concomitant]
     Indication: ULCER
  4. METOPROLOL SUCCINATE [Concomitant]
     Indication: HYPERTENSION
  5. LOSARTAN POTASSIUM [Concomitant]
     Indication: HYPERTENSION
  6. DYAZIDE [Concomitant]
     Indication: HYPERTENSION

REACTIONS (3)
  - EPISTAXIS [None]
  - PROSTATIC SPECIFIC ANTIGEN DECREASED [None]
  - RESORPTION BONE INCREASED [None]
